FAERS Safety Report 8433101 (Version 2)
Quarter: 2022Q2

REPORT INFORMATION
  Report Type: Report from Study
  Country: US (occurrence: None)
  Receive Date: 20120229
  Receipt Date: 20220513
  Transmission Date: 20220721
  Serious: Yes (Death, Hospitalization)
  Sender: FDA-Public Use
  Company Number: US-ROCHE-1042677

PATIENT
  Age: 82 Year
  Sex: Female
  Weight: 40.5 kg

DRUGS (3)
  1. BEVACIZUMAB [Suspect]
     Active Substance: BEVACIZUMAB
     Indication: Fallopian tube cancer
     Dosage: 30-90 MINUTES ON DAY 1 OF CYCLES 2
     Route: 042
     Dates: start: 20110922
  2. PACLITAXEL [Suspect]
     Active Substance: PACLITAXEL
     Indication: Fallopian tube cancer
     Dosage: OVER 3 HRS ON DAY 1
     Route: 042
     Dates: start: 20110922
  3. CARBOPLATIN [Suspect]
     Active Substance: CARBOPLATIN
     Indication: Fallopian tube cancer
     Dosage: AUC = 6 IV ON DAY 1 (
     Route: 042

REACTIONS (3)
  - Dyspnoea [Unknown]
  - Pneumonia [Fatal]
  - Platelet count decreased [Unknown]

NARRATIVE: CASE EVENT DATE: 20120119
